FAERS Safety Report 8841360 (Version 1)
Quarter: 2012Q4

REPORT INFORMATION
  Report Type: Report from Study
  Country: JP (occurrence: JP)
  Receive Date: 20121015
  Receipt Date: 20121015
  Transmission Date: 20130627
  Serious: Yes (Other)
  Sender: FDA-Public Use
  Company Number: JP-VERTEX PHARMACEUTICAL INC.-2012-022589

PATIENT
  Age: 43 Year
  Sex: Female

DRUGS (14)
  1. VX-950 [Suspect]
     Indication: HEPATITIS C
     Dosage: 1500 mg, qd
     Dates: start: 20120410, end: 20120703
  2. RIBAVIRIN [Suspect]
     Indication: HEPATITIS C
     Dosage: 400 mg, qd
     Route: 048
     Dates: start: 20120410, end: 20120604
  3. RIBAVIRIN [Suspect]
     Dosage: 300 mg, qd
     Route: 048
     Dates: start: 20120605, end: 20120618
  4. RIBAVIRIN [Suspect]
     Dosage: 400 mg, qd
     Route: 048
     Dates: start: 20120619, end: 20120625
  5. RIBAVIRIN [Suspect]
     Dosage: 300 mg, qd
     Route: 048
     Dates: start: 20120626
  6. PEGINTERFERON ALFA-2B [Suspect]
     Indication: HEPATITIS C
     Dosage: 1.5 ?g/kg, UNK
     Route: 058
     Dates: start: 20120410, end: 20120416
  7. PEGINTERFERON ALFA-2B [Suspect]
     Dosage: 1.0 ?g/kg, UNK
     Route: 058
     Dates: start: 20120417, end: 20120514
  8. PEGINTERFERON ALFA-2B [Suspect]
     Dosage: 1.5 ?g/kg, UNK
     Route: 058
     Dates: start: 20120515
  9. LEXAPRO [Concomitant]
     Dosage: 10 mg, qd
     Route: 048
  10. REFLEX                             /01293201/ [Concomitant]
     Dosage: 15 mg, qd
     Route: 048
  11. MYSLEE [Concomitant]
     Dosage: 10 mg, qd
     Route: 048
  12. LENDORMIN DAINIPPO [Concomitant]
     Dosage: 0.25 mg, qd
     Route: 048
  13. DEPAS [Concomitant]
     Dosage: 15 mg, qd
     Route: 048
  14. URSO                               /00465701/ [Concomitant]
     Dosage: 600 mg, qd
     Route: 048

REACTIONS (1)
  - Neutrophil count decreased [Recovered/Resolved]
